FAERS Safety Report 8452658-8 (Version None)
Quarter: 2012Q2

REPORT INFORMATION
  Report Type: 
  Country: None (occurrence: None)
  Receive Date: 20120620
  Receipt Date: 20120424
  Transmission Date: 20120825
  Serious: No
  Sender: FDA-Public Use
  Company Number: US-VERTEX PHARMACEUTICALS INC.-AE-2012-005780

PATIENT
  Sex: Female
  Weight: 62.652 kg

DRUGS (7)
  1. PEGASYS [Concomitant]
     Indication: HEPATITIS C
     Route: 058
     Dates: start: 20120329, end: 20120422
  2. CARDURA [Concomitant]
     Route: 048
  3. INCIVEK [Suspect]
     Indication: HEPATITIS C
     Route: 048
     Dates: start: 20120329, end: 20120422
  4. ATRIPLA [Concomitant]
     Indication: HIV INFECTION
     Route: 048
  5. RIBAVIRIN [Concomitant]
     Indication: HEPATITIS C
     Route: 048
     Dates: start: 20120329, end: 20120422
  6. VERAPAMIL [Concomitant]
     Route: 048
  7. OXCARBAZEPINE [Concomitant]
     Route: 048

REACTIONS (4)
  - OFF LABEL USE [None]
  - FATIGUE [None]
  - VERTIGO [None]
  - NAUSEA [None]
